FAERS Safety Report 4461491-3 (Version None)
Quarter: 2004Q3

REPORT INFORMATION
  Report Type: 
  Country: None (occurrence: None)
  Receive Date: 20040909
  Receipt Date: 20040722
  Transmission Date: 20050211
  Serious: Yes (Life-Threatening)
  Sender: FDA-Public Use
  Company Number: 200409116

PATIENT
  Age: 48 Year
  Sex: Male
  Weight: 70 kg

DRUGS (4)
  1. MONONINE [Suspect]
     Indication: FACTOR IX DEFICIENCY
     Dosage: 3360 U PRN IV
     Route: 042
  2. INSULIN HUMULIN [Concomitant]
  3. VIOXX [Concomitant]
  4. HYDROCODONE [Concomitant]

REACTIONS (6)
  - DYSPNOEA [None]
  - EYE SWELLING [None]
  - PRURITUS [None]
  - RASH PAPULAR [None]
  - THROAT TIGHTNESS [None]
  - URTICARIA [None]
